FAERS Safety Report 9658645 (Version 2)
Quarter: 2013Q4

REPORT INFORMATION
  Report Type: Spontaneous
  Country: US (occurrence: US)
  Receive Date: 20131030
  Receipt Date: 20131030
  Transmission Date: 20140711
  Serious: No
  Sender: FDA-Public Use
  Company Number: US-PURDUE-USA-2011-0074383

PATIENT
  Age: 68 Year
  Sex: Male

DRUGS (2)
  1. OXYCONTIN (NDA 22-272) [Suspect]
     Indication: CANCER PAIN
     Dosage: 160 MG, DAILY
     Route: 048
     Dates: start: 20110825
  2. OXYIR [Concomitant]
     Indication: BREAKTHROUGH PAIN
     Dosage: 5 MG, Q6H PRN
     Route: 048

REACTIONS (2)
  - Medication residue present [Unknown]
  - Wrong technique in drug usage process [Unknown]
